FAERS Safety Report 4747394-5 (Version None)
Quarter: 2005Q3

REPORT INFORMATION
  Report Type: 
  Country: None (occurrence: None)
  Receive Date: 20050815
  Receipt Date: 20050519
  Transmission Date: 20060218
  Serious: No
  Sender: FDA-Public Use
  Company Number: USA050598496

PATIENT
  Sex: Male

DRUGS (3)
  1. CIALIS [Suspect]
     Indication: ERECTILE DYSFUNCTION
     Dosage: 20 MG/ 1 AS NEEDED
     Dates: start: 20050505
  2. GLUCOSAMINE [Concomitant]
  3. PRILOSEC [Concomitant]

REACTIONS (2)
  - DYSPEPSIA [None]
  - VOMITING [None]
